FAERS Safety Report 5315786-1 (Version None)
Quarter: 2007Q2

REPORT INFORMATION
  Report Type: 
  Country: None (occurrence: None)
  Receive Date: 20070503
  Receipt Date: 20070430
  Transmission Date: 20071010
  Serious: Yes (Hospitalization)
  Sender: FDA-Public Use
  Company Number: US-GLAXOSMITHKLINE-A0649284A

PATIENT
  Age: 60 Year
  Sex: Female

DRUGS (3)
  1. REQUIP [Suspect]
     Indication: RESTLESS LEGS SYNDROME
     Dosage: .5MG PER DAY
     Route: 048
     Dates: start: 20061001, end: 20070429
  2. LIPITOR [Concomitant]
  3. CPAP [Concomitant]

REACTIONS (3)
  - NAUSEA [None]
  - PAIN IN EXTREMITY [None]
  - THROMBOSIS [None]
